FAERS Safety Report 7598647-7 (Version None)
Quarter: 2011Q3

REPORT INFORMATION
  Report Type: 
  Country: None (occurrence: None)
  Receive Date: 20110711
  Receipt Date: 20110630
  Transmission Date: 20111222
  Serious: Yes (Hospitalization, Other)
  Sender: FDA-Public Use
  Company Number: US-BIOGENIDEC-2010BI005327

PATIENT
  Age: 29 Year
  Sex: Female

DRUGS (5)
  1. TYSABRI [Suspect]
     Indication: MULTIPLE SCLEROSIS
     Route: 042
     Dates: start: 20080415, end: 20090311
  2. WELLBUTRIN [Concomitant]
  3. TYSABRI [Suspect]
     Route: 042
     Dates: start: 20090805, end: 20091209
  4. PRENATAL VITAMINS [Concomitant]
  5. TYSABRI [Suspect]
     Route: 042
     Dates: start: 20100930

REACTIONS (2)
  - ARRESTED LABOUR [None]
  - PREGNANCY [None]
